FAERS Safety Report 20336825 (Version 1)
Quarter: 2022Q1

REPORT INFORMATION
  Report Type: Report from Study
  Country: US (occurrence: US)
  Receive Date: 20220114
  Receipt Date: 20220114
  Transmission Date: 20220424
  Serious: Yes (Hospitalization)
  Sender: FDA-Public Use
  Company Number: US-ABBVIE-18P-163-2408436-00

PATIENT
  Age: 62 Year
  Sex: Male
  Weight: 68.100 kg

DRUGS (10)
  1. PLACEBO [Suspect]
     Active Substance: UNSPECIFIED INGREDIENT
     Indication: Rheumatoid arthritis
     Route: 048
     Dates: start: 20160720, end: 20161011
  2. UPADACITINIB [Suspect]
     Active Substance: UPADACITINIB
     Indication: Rheumatoid arthritis
     Route: 048
     Dates: start: 20161012, end: 20180629
  3. METHOTREXATE [Concomitant]
     Active Substance: METHOTREXATE
     Indication: Rheumatoid arthritis
     Route: 048
     Dates: start: 20160420, end: 20180630
  4. ASPIRIN [Concomitant]
     Active Substance: ASPIRIN
     Indication: Cardiovascular event prophylaxis
     Route: 048
     Dates: start: 20110617
  5. ETODOLAC [Concomitant]
     Active Substance: ETODOLAC
     Indication: Rheumatoid arthritis
     Route: 048
     Dates: start: 20160323
  6. FERROUS SULFATE [Concomitant]
     Active Substance: FERROUS SULFATE
     Indication: Iron deficiency anaemia
     Route: 048
     Dates: start: 20160405
  7. FOLIC ACID [Concomitant]
     Active Substance: FOLIC ACID
     Indication: Supplementation therapy
     Route: 048
     Dates: start: 20160302
  8. NITROSTAT [Concomitant]
     Active Substance: NITROGLYCERIN
     Indication: Coronary artery disease
     Route: 060
     Dates: start: 20160212
  9. CLOPIDOGREL [Concomitant]
     Active Substance: CLOPIDOGREL BISULFATE
     Indication: Coronary artery disease
     Route: 048
     Dates: start: 20110617
  10. OMEPRAZOLE [Concomitant]
     Active Substance: OMEPRAZOLE
     Indication: Chronic gastritis
     Route: 048
     Dates: start: 20160629

REACTIONS (3)
  - Staphylococcal bacteraemia [Recovered/Resolved]
  - Arthritis bacterial [Recovered/Resolved]
  - Endocarditis staphylococcal [Recovered/Resolved]

NARRATIVE: CASE EVENT DATE: 20180629
